FAERS Safety Report 4753009-2 (Version None)
Quarter: 2005Q3

REPORT INFORMATION
  Report Type: 
  Country: None (occurrence: None)
  Receive Date: 20050826
  Receipt Date: 20050513
  Transmission Date: 20060218
  Serious: Yes (Hospitalization, Disabling)
  Sender: FDA-Public Use
  Company Number: US-MERCK-0505USA01811

PATIENT
  Age: 46 Year
  Sex: Male
  Weight: 91 kg

DRUGS (4)
  1. VIOXX [Suspect]
     Indication: BACK PAIN
     Route: 048
     Dates: start: 20001101, end: 20021204
  2. VIOXX [Suspect]
     Route: 048
     Dates: start: 20030701, end: 20041005
  3. VIOXX [Suspect]
     Indication: PAIN IN EXTREMITY
     Route: 048
     Dates: start: 20001101, end: 20021204
  4. VIOXX [Suspect]
     Route: 048
     Dates: start: 20030701, end: 20041005

REACTIONS (12)
  - BACK PAIN [None]
  - BLOOD CHOLESTEROL INCREASED [None]
  - CHEST PAIN [None]
  - CORONARY ARTERY DISEASE [None]
  - ERECTILE DYSFUNCTION [None]
  - GASTROOESOPHAGEAL REFLUX DISEASE [None]
  - HYPERSENSITIVITY [None]
  - HYPERTENSION [None]
  - LIMB INJURY [None]
  - MYOCARDIAL INFARCTION [None]
  - PAIN IN EXTREMITY [None]
  - SCIATICA [None]
